FAERS Safety Report 15730957 (Version 4)
Quarter: 2020Q1

REPORT INFORMATION
  Report Type: Spontaneous
  Country: US (occurrence: US)
  Receive Date: 20181217
  Receipt Date: 20200312
  Transmission Date: 20200409
  Serious: Yes (Death, Hospitalization, Other)
  Sender: FDA-Public Use
  Company Number: US-ACTELION-A-US2018-183380

PATIENT
  Age: 58 Year
  Sex: Female
  Weight: 62.13 kg

DRUGS (3)
  1. ADCIRCA [Concomitant]
     Active Substance: TADALAFIL
  2. VELETRI [Suspect]
     Active Substance: EPOPROSTENOL
     Dosage: 39 NG/KG, PER MIN
     Route: 042
  3. VELETRI [Suspect]
     Active Substance: EPOPROSTENOL
     Indication: PULMONARY HYPERTENSION
     Dosage: 38 NG/KG, PER MIN
     Route: 042

REACTIONS (11)
  - Diarrhoea [Unknown]
  - Emergency care [Unknown]
  - Vomiting [Unknown]
  - Hypotension [Unknown]
  - Malaise [Unknown]
  - Dehydration [Unknown]
  - Nail infection [Unknown]
  - Nausea [Unknown]
  - Chills [Unknown]
  - Death [Fatal]
  - Osteomyelitis [Unknown]

NARRATIVE: CASE EVENT DATE: 201904
